FAERS Safety Report 20127878 (Version 1)
Quarter: 2021Q4

REPORT INFORMATION
  Report Type: Report from Study
  Country: FR (occurrence: FR)
  Receive Date: 20211129
  Receipt Date: 20211129
  Transmission Date: 20220303
  Serious: Yes (Hospitalization)
  Sender: FDA-Public Use
  Company Number: FR-SAMSUNG BIOEPIS-SB-2021-26026

PATIENT
  Age: 56 Year
  Sex: Male

DRUGS (6)
  1. PREDNISOLONE [Suspect]
     Active Substance: PREDNISOLONE
     Indication: Product used for unknown indication
     Dosage: VARIABLE-DOSE
     Route: 065
     Dates: start: 20200618, end: 202009
  2. PREDNISOLONE [Suspect]
     Active Substance: PREDNISOLONE
     Route: 048
     Dates: start: 20201014
  3. IMRALDI [Suspect]
     Active Substance: ADALIMUMAB
     Indication: Colitis ulcerative
     Dosage: AT HOSPITAL
     Route: 058
     Dates: start: 20200710
  4. IMRALDI [Suspect]
     Active Substance: ADALIMUMAB
     Dosage: AT HOSPITAL
     Route: 058
     Dates: start: 20200626
  5. IMRALDI [Suspect]
     Active Substance: ADALIMUMAB
     Route: 065
     Dates: start: 20201016
  6. IMRALDI [Suspect]
     Active Substance: ADALIMUMAB
     Dosage: AT HOME
     Route: 058

REACTIONS (10)
  - Dehydration [Unknown]
  - Colitis ulcerative [Unknown]
  - Abdominal lymphadenopathy [Unknown]
  - Vomiting [Unknown]
  - Pyrexia [Recovered/Resolved]
  - Epstein-Barr virus test positive [Unknown]
  - Hyperthermia [Unknown]
  - Acute kidney injury [Unknown]
  - Decreased appetite [Unknown]
  - Nausea [Unknown]

NARRATIVE: CASE EVENT DATE: 20200905
